FAERS Safety Report 23974966 (Version 1)
Quarter: 2024Q2

REPORT INFORMATION
  Report Type: Spontaneous
  Country: CN (occurrence: CN)
  Receive Date: 20240614
  Receipt Date: 20240614
  Transmission Date: 20240716
  Serious: Yes (Other)
  Sender: FDA-Public Use
  Company Number: CN-PFIZER INC-PV202400076604

PATIENT
  Sex: Female

DRUGS (1)
  1. LORBRENA [Suspect]
     Active Substance: LORLATINIB
     Dosage: 100 MG/QD
     Route: 048
     Dates: start: 20230724

REACTIONS (3)
  - Hypokalaemia [Unknown]
  - Lipids increased [Unknown]
  - Hypoaesthesia [Unknown]
